FAERS Safety Report 9262319 (Version 1)
Quarter: 2013Q2

REPORT INFORMATION
  Report Type: Spontaneous
  Country: US (occurrence: None)
  Receive Date: 20130425
  Receipt Date: 20130425
  Transmission Date: 20140414
  Serious: Yes (Life-Threatening, Hospitalization)
  Sender: FDA-Public Use
  Company Number: None

PATIENT
  Age: 56 Year
  Sex: Male
  Weight: 46.8 kg

DRUGS (1)
  1. DABIGATRAN [Suspect]
     Dosage: 1 CAPSULE
     Route: 048
     Dates: start: 20120928, end: 20130422

REACTIONS (1)
  - Thrombosis in device [None]
